FAERS Safety Report 7966646 (Version 7)
Quarter: 2013Q1

REPORT INFORMATION
  Report Type: Report from Study
  Country: FR (occurrence: FR)
  Receive Date: 20110531
  Receipt Date: 20130228
  Transmission Date: 20140127
  Serious: Yes (Hospitalization)
  Sender: FDA-Public Use
  Company Number: FR-JNJFOC-20110400684

PATIENT
  Age: 66 Year
  Sex: Male
  Weight: 75 kg

DRUGS (21)
  1. ABIRATERONE [Suspect]
     Indication: PROSTATE CANCER
     Route: 048
     Dates: start: 20110408, end: 20110831
  2. ABIRATERONE [Suspect]
     Indication: PROSTATE CANCER
     Route: 048
     Dates: end: 20110404
  3. CORTANCYL [Suspect]
     Indication: PROSTATE CANCER
     Route: 048
     Dates: start: 20110407, end: 20110410
  4. CORTANCYL [Suspect]
     Indication: PROSTATE CANCER
     Route: 048
     Dates: start: 20110412, end: 20110416
  5. CORTANCYL [Suspect]
     Indication: PROSTATE CANCER
     Route: 048
     Dates: start: 20110417, end: 20110421
  6. CORTANCYL [Suspect]
     Indication: PROSTATE CANCER
     Route: 048
     Dates: start: 20110427, end: 20110629
  7. CORTANCYL [Suspect]
     Indication: PROSTATE CANCER
     Route: 048
     Dates: start: 20110323
  8. CORTANCYL [Suspect]
     Indication: PROSTATE CANCER
     Route: 048
     Dates: start: 20110422, end: 20110426
  9. PRAVASTATIN [Concomitant]
     Indication: HYPERCHOLESTEROLAEMIA
     Route: 048
     Dates: start: 20080811
  10. INEXIUM [Concomitant]
     Indication: GASTROINTESTINAL DISORDER THERAPY
     Route: 048
     Dates: start: 20090607, end: 20110629
  11. ZYLORIC [Concomitant]
     Indication: GOUT
     Route: 048
     Dates: start: 1988
  12. PLAVIX [Concomitant]
     Indication: CEREBROVASCULAR ACCIDENT
     Route: 048
     Dates: start: 200608, end: 20110330
  13. PLAVIX [Concomitant]
     Indication: CEREBROVASCULAR ACCIDENT
     Route: 048
     Dates: start: 20110408
  14. STABLON [Concomitant]
     Indication: DEPRESSION
     Route: 048
     Dates: start: 2002
  15. ZOLADEX [Concomitant]
     Indication: PROSTATE CANCER
     Route: 058
     Dates: start: 20070725
  16. LYRICA [Concomitant]
     Indication: NEURALGIA
     Route: 048
  17. LOVENOX [Concomitant]
     Indication: TRANSIENT ISCHAEMIC ATTACK
     Route: 058
     Dates: start: 20110331, end: 20110407
  18. SOLU MEDROL [Concomitant]
     Indication: PRODUCT USED FOR UNKNOWN INDICATION
     Route: 042
     Dates: start: 20110331, end: 20110404
  19. ATARAX [Concomitant]
     Indication: ANXIETY
     Route: 042
     Dates: start: 20110401, end: 20110405
  20. OXYCONTIN [Concomitant]
     Indication: MUSCULOSKELETAL PAIN
     Route: 048
     Dates: start: 20110405
  21. OXYNORM [Concomitant]
     Indication: MUSCULOSKELETAL PAIN
     Route: 048
     Dates: start: 20110405

REACTIONS (16)
  - Dyspnoea [Recovered/Resolved]
  - Dyspnoea [Recovered/Resolved]
  - Weight increased [Recovered/Resolved]
  - Bone pain [Recovered/Resolved]
  - Oedema peripheral [Recovered/Resolved]
  - Pyrexia [Recovered/Resolved]
  - Infection [Recovered/Resolved]
  - Hyponatraemia [Unknown]
  - Pain in extremity [Unknown]
  - Asthenia [Unknown]
  - Abdominal pain [Recovered/Resolved]
  - Inappropriate schedule of drug administration [Unknown]
  - Constipation [Unknown]
  - Asthenia [Unknown]
  - Paraesthesia [Not Recovered/Not Resolved]
  - Back pain [Recovered/Resolved]
